FAERS Safety Report 5110847-4 (Version None)
Quarter: 2006Q3

REPORT INFORMATION
  Report Type: 
  Country: None (occurrence: None)
  Receive Date: 20060919
  Receipt Date: 20060906
  Transmission Date: 20061208
  Serious: Yes (Hospitalization)
  Sender: FDA-Public Use
  Company Number: 2006108744

PATIENT
  Age: 56 Year
  Sex: Female

DRUGS (7)
  1. LYRICA [Suspect]
     Indication: NEURALGIA
     Dates: start: 20060101, end: 20060701
  2. PROTONIX [Concomitant]
  3. MICARDIS [Concomitant]
  4. MIRAPEX [Concomitant]
  5. ADDERALL 10 [Concomitant]
  6. CRESTOR [Concomitant]
  7. WELLBUTRIN [Concomitant]

REACTIONS (6)
  - DERMATITIS [None]
  - ERYTHEMA [None]
  - HYPERSENSITIVITY [None]
  - NO THERAPEUTIC RESPONSE [None]
  - OEDEMA PERIPHERAL [None]
  - PAIN IN EXTREMITY [None]
